FAERS Safety Report 5030291-8 (Version None)
Quarter: 2006Q2

REPORT INFORMATION
  Report Type: 
  Country: None (occurrence: None)
  Receive Date: 20060614
  Receipt Date: 20060606
  Transmission Date: 20061013
  Serious: Yes (Hospitalization)
  Sender: FDA-Public Use
  Company Number: 430005M06FRA

PATIENT
  Age: 67 Year
  Sex: Female

DRUGS (3)
  1. NOVANTRONE [Suspect]
     Indication: BREAST CANCER FEMALE
     Dosage: INTRAVENOUS (NOT OTHERWISE SPECIFIED)
     Route: 042
     Dates: start: 20000101, end: 20010306
  2. FLUOROURACIL [Concomitant]
  3. CYCLOPHOSPHAMIDE [Concomitant]

REACTIONS (5)
  - ASTHENIA [None]
  - BLOOD UREA DECREASED [None]
  - DYSPNOEA EXERTIONAL [None]
  - MEGAKARYOCYTES ABNORMAL [None]
  - MYELODYSPLASTIC SYNDROME [None]
